FAERS Safety Report 6607438-2 (Version None)
Quarter: 2010Q1

REPORT INFORMATION
  Report Type: 
  Country: None (occurrence: None)
  Receive Date: 20100301
  Receipt Date: 20100219
  Transmission Date: 20100710
  Serious: Yes (Hospitalization)
  Sender: FDA-Public Use
  Company Number: US-ELI_LILLY_AND_COMPANY-US201002005976

PATIENT
  Sex: Male
  Weight: 88.889 kg

DRUGS (6)
  1. GEMCITABINE HCL [Suspect]
     Indication: TRANSITIONAL CELL CARCINOMA
     Dosage: 1000 MG/M2, OTHER
     Route: 042
     Dates: start: 20081006
  2. CETUXIMAB [Suspect]
     Indication: TRANSITIONAL CELL CARCINOMA
     Dosage: 500 MG/M2, OTHER
     Route: 042
     Dates: start: 20081006
  3. CISPLATIN [Suspect]
     Indication: TRANSITIONAL CELL CARCINOMA
     Dosage: 70 MG/M2, OTHER
     Route: 042
     Dates: start: 20081006
  4. LORATADINE [Concomitant]
     Route: 048
  5. MINOCYCLINE HCL [Concomitant]
     Route: 048
  6. ENOXAPARIN SODIUM [Concomitant]
     Route: 058

REACTIONS (1)
  - PULMONARY EMBOLISM [None]
